FAERS Safety Report 9263552 (Version 2)
Quarter: 2013Q2

REPORT INFORMATION
  Report Type: Spontaneous
  Country: US (occurrence: US)
  Receive Date: 20130430
  Receipt Date: 20130522
  Transmission Date: 20140414
  Serious: No
  Sender: FDA-Public Use
  Company Number: US-PFIZER INC-2013127384

PATIENT
  Age: 58 Year
  Sex: Female
  Weight: 86.17 kg

DRUGS (3)
  1. FLAGYL [Suspect]
     Dosage: UNK
  2. MICARDIS HCT [Concomitant]
     Indication: BLOOD PRESSURE ABNORMAL
     Dosage: 1 DF, 1X/DAY (80/20 MG DAILY)
     Dates: start: 20060509
  3. XANAX [Concomitant]
     Dosage: UNK

REACTIONS (1)
  - Drug hypersensitivity [Unknown]
